FAERS Safety Report 15436532 (Version 1)
Quarter: 2018Q3

REPORT INFORMATION
  Report Type: Spontaneous
  Country: RO (occurrence: RO)
  Receive Date: 20180927
  Receipt Date: 20180927
  Transmission Date: 20181010
  Serious: Yes (Hospitalization)
  Sender: FDA-Public Use
  Company Number: RO-PFIZER INC-2018385627

PATIENT
  Age: 71 Year
  Sex: Female
  Weight: 68 kg

DRUGS (7)
  1. NEBILET [Concomitant]
     Active Substance: NEBIVOLOL
     Dosage: 5 MG, 1X/DAY, 1/2 IN THE MORNING
  2. MONOPRIL [Concomitant]
     Active Substance: FOSINOPRIL SODIUM
     Dosage: 80 MG, 1X/DAY, 1/2 IN THE EVENING
  3. SINTROM [Concomitant]
     Active Substance: ACENOCOUMAROL
     Dosage: 50 MG, 1X/DAY (AT NOON)
  4. DIUREX [FUROSEMIDE;SPIRONOLACTONE] [Concomitant]
     Dosage: 50 MG, 1X/DAY (IN THE MORNING)
  5. SUTENT [Suspect]
     Active Substance: SUNITINIB MALATE
     Indication: METASTATIC RENAL CELL CARCINOMA
     Dosage: 50 MG, UNK
     Dates: start: 20180425, end: 20180820
  6. ULTRACOD [Concomitant]
     Dosage: 50 MG, 1X/DAY (IN THE MORNING)
  7. MAALOX [ALUMINIUM HYDROXIDE;MAGNESIUM HYDROXIDE] [Concomitant]
     Dosage: 400 MG, 1 AS NEEDED

REACTIONS (5)
  - Neoplasm progression [Unknown]
  - Spinal pain [Unknown]
  - Gastrointestinal disorder [Unknown]
  - Pain in extremity [Unknown]
  - Vomiting [Unknown]

NARRATIVE: CASE EVENT DATE: 20180820
